FAERS Safety Report 12090153 (Version 9)
Quarter: 2016Q2

REPORT INFORMATION
  Report Type: Report from Study
  Country: CA (occurrence: CA)
  Receive Date: 20160218
  Receipt Date: 20160411
  Transmission Date: 20160815
  Serious: Yes (Other)
  Sender: FDA-Public Use
  Company Number: CA-SA-2015SA044548

PATIENT
  Age: 26 Year
  Sex: Female
  Weight: 81.8 kg

DRUGS (14)
  1. LEMTRADA [Suspect]
     Active Substance: ALEMTUZUMAB
     Indication: RELAPSING-REMITTING MULTIPLE SCLEROSIS
     Route: 041
     Dates: start: 20150406, end: 20150410
  2. CIMETIDINE [Concomitant]
     Active Substance: CIMETIDINE
     Indication: INFUSION RELATED REACTION
     Dosage: QDX5 DAYS
     Route: 048
     Dates: start: 20150406, end: 20150410
  3. GABAPENTIN. [Concomitant]
     Active Substance: GABAPENTIN
     Indication: NEURALGIA
     Dosage: PRN
     Route: 048
  4. DEXAMETHASONE. [Concomitant]
     Active Substance: DEXAMETHASONE
     Indication: INFUSION RELATED REACTION
     Route: 042
     Dates: start: 20150406, end: 20150410
  5. BENADRYL [Concomitant]
     Active Substance: DIPHENHYDRAMINE HYDROCHLORIDE
     Indication: PREMEDICATION
     Dosage: 50MGX1 THEN PRN
     Route: 042
     Dates: start: 20150406, end: 20150410
  6. BENADRYL [Concomitant]
     Active Substance: DIPHENHYDRAMINE HYDROCHLORIDE
     Indication: INFUSION RELATED REACTION
     Dosage: 50MGX1 THEN PRN
     Route: 042
     Dates: start: 20150406, end: 20150410
  7. GRAVOL [Concomitant]
     Active Substance: DIMENHYDRINATE
     Indication: PREMEDICATION
     Dosage: Q4 HR PRN
     Route: 042
     Dates: start: 20150406, end: 20150410
  8. GRAVOL [Concomitant]
     Active Substance: DIMENHYDRINATE
     Indication: INFUSION RELATED REACTION
     Dosage: Q4 HR PRN
     Route: 042
     Dates: start: 20150406, end: 20150410
  9. DECADRON [Concomitant]
     Active Substance: DEXAMETHASONE
     Indication: PREMEDICATION
     Dates: start: 20150408
  10. ACYCLOVIR. [Concomitant]
     Active Substance: ACYCLOVIR
     Indication: ANTIVIRAL PROPHYLAXIS
     Dosage: BIDX30 DAYS
     Route: 048
     Dates: start: 20150406
  11. ACETAMINOPHEN. [Concomitant]
     Active Substance: ACETAMINOPHEN
     Indication: PREMEDICATION
     Dosage: Q4 HOURS PRN
     Route: 048
     Dates: start: 20150406, end: 20150410
  12. DEXAMETHASONE. [Concomitant]
     Active Substance: DEXAMETHASONE
     Indication: PREMEDICATION
     Route: 042
     Dates: start: 20150406, end: 20150410
  13. ACETAMINOPHEN. [Concomitant]
     Active Substance: ACETAMINOPHEN
     Indication: INFUSION RELATED REACTION
     Dosage: Q4 HOURS PRN
     Route: 048
     Dates: start: 20150406, end: 20150410
  14. CIMETIDINE [Concomitant]
     Active Substance: CIMETIDINE
     Indication: PREMEDICATION
     Dosage: QDX5 DAYS
     Route: 048
     Dates: start: 20150406, end: 20150410

REACTIONS (53)
  - Nasal congestion [Not Recovered/Not Resolved]
  - Blood urine present [Unknown]
  - Insomnia [Recovered/Resolved]
  - Fatigue [Not Recovered/Not Resolved]
  - Gingival pain [Recovered/Resolved]
  - Hypersensitivity [Recovered/Resolved]
  - Diarrhoea [Not Recovered/Not Resolved]
  - Infusion site pain [Unknown]
  - Dysphagia [Recovering/Resolving]
  - Chromaturia [Unknown]
  - Vomiting [Not Recovered/Not Resolved]
  - Decreased appetite [Recovered/Resolved]
  - Constipation [Recovered/Resolved]
  - Ear pain [Not Recovered/Not Resolved]
  - Ocular discomfort [Not Recovered/Not Resolved]
  - Spinal pain [Not Recovered/Not Resolved]
  - Erythema [Unknown]
  - Leukopenia [Unknown]
  - Blood glucose increased [Unknown]
  - Red cell distribution width increased [Recovered/Resolved]
  - Erythema [Recovered/Resolved]
  - Hypotension [Recovered/Resolved]
  - Oropharyngeal pain [Not Recovered/Not Resolved]
  - Vulvovaginal mycotic infection [Recovering/Resolving]
  - Toothache [Recovered/Resolved]
  - Mean cell haemoglobin concentration decreased [Not Recovered/Not Resolved]
  - Cold sweat [Not Recovered/Not Resolved]
  - Urticaria [Recovered/Resolved]
  - Gingivitis [Recovered/Resolved]
  - White blood cell count decreased [Recovered/Resolved]
  - Arthralgia [Not Recovered/Not Resolved]
  - Infusion site extravasation [Recovered/Resolved]
  - Lymphadenopathy [Recovering/Resolving]
  - Neck pain [Recovered/Resolved]
  - Pruritus [Not Recovered/Not Resolved]
  - Neutrophil count decreased [Recovered/Resolved]
  - Skin papilloma [Recovering/Resolving]
  - Feeling cold [Recovered/Resolved]
  - Musculoskeletal stiffness [Recovered/Resolved]
  - Hyperaesthesia [Not Recovered/Not Resolved]
  - Urticaria [Not Recovered/Not Resolved]
  - Pain [Not Recovered/Not Resolved]
  - Infusion site swelling [Unknown]
  - Menstruation irregular [Recovered/Resolved]
  - Mean cell haemoglobin decreased [Recovered/Resolved]
  - Urine ketone body present [Not Recovered/Not Resolved]
  - Pain in extremity [Recovered/Resolved]
  - Headache [Recovered/Resolved]
  - Nausea [Recovered/Resolved]
  - Chest discomfort [Recovered/Resolved]
  - Pruritus [Recovered/Resolved]
  - Gingival swelling [Recovered/Resolved]
  - Lymphocyte count decreased [Not Recovered/Not Resolved]

NARRATIVE: CASE EVENT DATE: 2015
